FAERS Safety Report 8311387-1 (Version None)
Quarter: 2012Q2

REPORT INFORMATION
  Report Type: 
  Country: None (occurrence: None)
  Receive Date: 20120425
  Receipt Date: 20110325
  Transmission Date: 20120825
  Serious: No
  Sender: FDA-Public Use
  Company Number: US-MYLANLABS-2011S1006593

PATIENT
  Age: 81 Year
  Sex: Male
  Weight: 88.91 kg

DRUGS (2)
  1. IPRATROPIUM BROMIDE AND ALBUTEROL SULFATE [Suspect]
     Indication: CHRONIC OBSTRUCTIVE PULMONARY DISEASE
     Route: 055
     Dates: start: 19950101
  2. IPRATROPIUM BROMIDE AND ALBUTEROL SULFATE [Suspect]
     Route: 055
     Dates: start: 19950101

REACTIONS (3)
  - MUCOUS MEMBRANE DISORDER [None]
  - DRY MOUTH [None]
  - DYSGEUSIA [None]
